FAERS Safety Report 17816943 (Version 1)
Quarter: 2020Q2

REPORT INFORMATION
  Report Type: Spontaneous
  Country: US (occurrence: US)
  Receive Date: 20200522
  Receipt Date: 20200522
  Transmission Date: 20200714
  Serious: No
  Sender: FDA-Public Use
  Company Number: None

PATIENT
  Sex: Female
  Weight: 59.4 kg

DRUGS (1)
  1. BUPRENORPHINE AND NALOXNOE 8/2MG FILM [Suspect]
     Active Substance: BUPRENORPHINE\NALOXONE
     Indication: DRUG DEPENDENCE
     Dosage: ?          QUANTITY:1.5 FILMS;OTHER FREQUENCY:1 FILM QAM;?
     Route: 060

REACTIONS (4)
  - Dyspnoea [None]
  - Anxiety [None]
  - Joint swelling [None]
  - Nightmare [None]

NARRATIVE: CASE EVENT DATE: 20200224
